FAERS Safety Report 5373362-9 (Version None)
Quarter: 2007Q2

REPORT INFORMATION
  Report Type: 
  Country: None (occurrence: None)
  Receive Date: 20070628
  Receipt Date: 20070618
  Transmission Date: 20071010
  Serious: Yes (Other)
  Sender: FDA-Public Use
  Company Number: FR-JNJFOC-20070604234

PATIENT
  Age: 92 Year
  Sex: Female

DRUGS (2)
  1. IMODIUM [Suspect]
     Indication: CONSTIPATION
     Route: 065
  2. IMODIUM [Suspect]
     Indication: DIARRHOEA
     Route: 065

REACTIONS (1)
  - INTESTINAL OBSTRUCTION [None]
